FAERS Safety Report 12365120 (Version 3)
Quarter: 2016Q4

REPORT INFORMATION
  Report Type: Report from Study
  Country: CA (occurrence: CA)
  Receive Date: 20160513
  Receipt Date: 20161125
  Transmission Date: 20170207
  Serious: Yes (Death, Hospitalization)
  Sender: FDA-Public Use
  Company Number: CA-HLSUS-2016-CA-000109

PATIENT
  Age: 48 Year
  Sex: Female

DRUGS (1)
  1. CLOZARIL [Suspect]
     Active Substance: CLOZAPINE
     Dosage: 900 MG AT BED TIME
     Route: 048
     Dates: start: 20011029, end: 2006

REACTIONS (7)
  - Chronic obstructive pulmonary disease [Unknown]
  - Pneumonia [Unknown]
  - Lung disorder [Unknown]
  - Lung disorder [Fatal]
  - Endotracheal intubation [Unknown]
  - Influenza [Unknown]
  - Pneumonia [Unknown]

NARRATIVE: CASE EVENT DATE: 200710
